FAERS Safety Report 20770703 (Version 1)
Quarter: 2022Q2

REPORT INFORMATION
  Report Type: Spontaneous
  Country: BG (occurrence: BG)
  Receive Date: 20220429
  Receipt Date: 20220429
  Transmission Date: 20220721
  Serious: Yes (Hospitalization, Other)
  Sender: FDA-Public Use
  Company Number: BG-TEVA-2022-BG-2029936

PATIENT
  Age: 83 Year
  Sex: Male

DRUGS (6)
  1. HYDROCHLOROTHIAZIDE\IRBESARTAN [Suspect]
     Active Substance: HYDROCHLOROTHIAZIDE\IRBESARTAN
     Indication: Hypertension
     Dosage: 150 MG/12.5 MG (1/0/1)
     Route: 065
  2. MOLSIDOMINE [Concomitant]
     Active Substance: MOLSIDOMINE
     Dosage: 2 MG (1/0/0),
  3. ROSUVASTATIN [Concomitant]
     Active Substance: ROSUVASTATIN
     Dosage: 20 MG (1/0/0
  4. vinpocetinev [Concomitant]
     Dosage: 10 MG (0/0/1),
  5. PIRACETAM [Concomitant]
     Active Substance: PIRACETAM
     Dosage: 2.4 G (1/0/0).
  6. dutasteride /tamsulosine [Concomitant]
     Indication: Benign prostatic hyperplasia
     Dosage: 0.5 MG/0.4 MG (1/0/0)

REACTIONS (1)
  - Keratoacanthoma [Unknown]
